FAERS Safety Report 7435958-X (Version None)
Quarter: 2011Q2

REPORT INFORMATION
  Report Type: 
  Country: None (occurrence: None)
  Receive Date: 20110418
  Receipt Date: 20110404
  Transmission Date: 20111010
  Serious: Yes (Death, Hospitalization)
  Sender: FDA-Public Use
  Company Number: 1000017753

PATIENT
  Age: 84 Year
  Sex: Female
  Weight: 58.9 kg

DRUGS (18)
  1. BURINEX (BUMETANIDE) (TABLETS) ( (BUMETANIDE)) [Concomitant]
  2. PARALIEF (PARACETAMOL) (PARACETAMOL) [Concomitant]
  3. DIGOXIN [Concomitant]
  4. EMCOR (BISOPROLOL FUMARATE) (5 MILLIGRAM, TABLETS) (BISOPROLOL FUMARAT [Concomitant]
  5. SEROQUEL [Suspect]
     Dosage: 25 MG (25 MG, 1 IN 1 D); 50 MG (25 MG, 2 IN 1 D), ORAL
     Route: 048
     Dates: start: 20100401, end: 20100501
  6. SEROQUEL [Suspect]
     Dosage: 25 MG (25 MG, 1 IN 1 D); 50 MG (25 MG, 2 IN 1 D), ORAL
     Route: 048
     Dates: start: 20100501
  7. FOLIC ACID [Concomitant]
  8. TRITACE (RAMIPRIL) (RAMIPRIL) [Concomitant]
  9. ANXICALM (DIAZEPAM) (DIAZEPAM) [Concomitant]
  10. HALCION [Concomitant]
  11. NEXIUM [Concomitant]
  12. ASASANTIN (DIPYRIDAMOLE) (CAPSULES) (DIPYRIDAMOLE) [Concomitant]
  13. DULPHALAC (LACTULOSE) (LACTULOSE) [Concomitant]
  14. MEMANTINE [Suspect]
     Indication: DEMENTIA
     Dosage: 10 MG (10 MG, 1 IN 1 D), ORAL
     Route: 048
     Dates: start: 20100501
  15. MEMANTINE [Suspect]
     Indication: DEMENTIA
     Dosage: 10 MG (10 MG, 1 IN 1 D), ORAL
     Route: 048
     Dates: start: 20100609
  16. NUSEALS ASPIRIN (ACETYLSALICYLIC ACID) (ACETYLSALICYLIC ACID) [Concomitant]
  17. SENNOKOT (SENNA ALEXANDRINA) (SENNA ALEXANDRINA) [Concomitant]
  18. MIRTAZAPINE [Concomitant]

REACTIONS (4)
  - RASH GENERALISED [None]
  - RASH PRURITIC [None]
  - RASH MACULAR [None]
  - PNEUMONIA [None]
